FAERS Safety Report 13126323 (Version 1)
Quarter: 2017Q1

REPORT INFORMATION
  Report Type: Spontaneous
  Country: US (occurrence: US)
  Receive Date: 20170118
  Receipt Date: 20170118
  Transmission Date: 20170428
  Serious: No
  Sender: FDA-Public Use
  Company Number: US-PURACAP PHARMACEUTICAL LLC-2017EPC00003

PATIENT
  Sex: Male

DRUGS (3)
  1. DOXYCYCLINE HYCLATE. [Suspect]
     Active Substance: DOXYCYCLINE HYCLATE
     Indication: LOCALISED INFECTION
     Dosage: UNK
     Dates: start: 2014, end: 2014
  2. UNSPECIFIED INTRAVENOUS ANTIBIOTICS [Concomitant]
  3. DOXYCYCLINE HYCLATE. [Suspect]
     Active Substance: DOXYCYCLINE HYCLATE
     Dosage: UNK
     Dates: start: 2016

REACTIONS (4)
  - Genital rash [Unknown]
  - Skin discomfort [Unknown]
  - Localised infection [Unknown]
  - Skin exfoliation [Unknown]

NARRATIVE: CASE EVENT DATE: 2014
